FAERS Safety Report 10049553 (Version 1)
Quarter: 2014Q1

REPORT INFORMATION
  Report Type: Spontaneous
  Country: US (occurrence: None)
  Receive Date: 20140331
  Receipt Date: 20140331
  Transmission Date: 20141002
  Serious: No
  Sender: FDA-Public Use
  Company Number: None

PATIENT
  Age: 37 Year
  Sex: Female

DRUGS (1)
  1. MIRENA IUD [Suspect]
     Dates: start: 20140214, end: 20140224

REACTIONS (3)
  - Pain [None]
  - Hypoaesthesia [None]
  - Pain in extremity [None]
